FAERS Safety Report 18069728 (Version 1)
Quarter: 2020Q3

REPORT INFORMATION
  Report Type: Spontaneous
  Country: US (occurrence: US)
  Receive Date: 20200727
  Receipt Date: 20200727
  Transmission Date: 20201103
  Serious: No
  Sender: FDA-Public Use
  Company Number: US-AUROBINDO-AUR-APL-2020-029269

PATIENT
  Age: 39 Year
  Sex: Female
  Weight: 64.4 kg

DRUGS (2)
  1. AZITHROMYCIN 250 MG TABLETS USP [Suspect]
     Active Substance: AZITHROMYCIN
     Dosage: 1 DOSAGE FORM, ONCE A DAY
     Route: 065
     Dates: start: 20200602, end: 20200605
  2. AZITHROMYCIN 250 MG TABLETS USP [Suspect]
     Active Substance: AZITHROMYCIN
     Indication: SINUSITIS
     Dosage: 250 MG TABLETS, 2 TABLETS INITIALLY AND THEN 1 TABLET EACH DAY AFTER
     Route: 065

REACTIONS (3)
  - Hypersensitivity [Not Recovered/Not Resolved]
  - Palpitations [Not Recovered/Not Resolved]
  - Heart rate increased [Not Recovered/Not Resolved]

NARRATIVE: CASE EVENT DATE: 20200605
